FAERS Safety Report 8467328-X (Version None)
Quarter: 2012Q2

REPORT INFORMATION
  Report Type: 
  Country: None (occurrence: None)
  Receive Date: 20120626
  Receipt Date: 20120618
  Transmission Date: 20120825
  Serious: Yes (Death, Hospitalization)
  Sender: FDA-Public Use
  Company Number: FR-UCBSA-060012

PATIENT
  Age: 76 Year
  Sex: Female

DRUGS (7)
  1. AUGMENTIN '125' [Concomitant]
     Dosage: TOTAL DAILY DOSE:2G
  2. OMEPRAZOLE [Concomitant]
     Dosage: FORM:ELECTRICAL SYRINGE
     Dates: start: 20120207, end: 20120201
  3. TEMOZOLOMIDE [Suspect]
     Indication: GLIOBLASTOMA
     Dosage: TOTAL DAILY DOSE: 120 MG
     Route: 048
     Dates: start: 20111201, end: 20120123
  4. PREDNISONE TAB [Concomitant]
     Dosage: TOTAL DAILY DOSE:60 MG
     Dates: start: 20120206, end: 20120228
  5. CIPROFLOXACIN HYDROCHLORIDE [Concomitant]
     Dosage: UNKNOWN DOSE
     Dates: start: 20120227, end: 20120228
  6. KEPPRA [Suspect]
     Indication: GLIOBLASTOMA
     Dosage: UNKNOWN DOSE
     Route: 048
     Dates: start: 20111201, end: 20120220
  7. NEUPOGEN [Concomitant]
     Dosage: 1 UNIT DAILY
     Dates: start: 20120206, end: 20120228

REACTIONS (7)
  - HYPERTHERMIA [None]
  - DYSPNOEA [None]
  - GASTRITIS HAEMORRHAGIC [None]
  - RENAL FAILURE [None]
  - RECTAL HAEMORRHAGE [None]
  - BLOOD DISORDER [None]
  - APLASIA [None]
